FAERS Safety Report 4853272-3 (Version None)
Quarter: 2005Q4

REPORT INFORMATION
  Report Type: 
  Country: None (occurrence: None)
  Receive Date: 20051214
  Receipt Date: 20050831
  Transmission Date: 20060501
  Serious: Yes (Hospitalization)
  Sender: FDA-Public Use
  Company Number: US-GLAXOSMITHKLINE-A0572537A

PATIENT
  Age: 53 Year
  Sex: Female
  Weight: 65.9 kg

DRUGS (2)
  1. VALTREX [Suspect]
     Route: 048
  2. EPIVIR [Suspect]
     Indication: HEPATITIS
     Dosage: 100MG PER DAY
     Route: 048

REACTIONS (6)
  - ABDOMINAL PAIN [None]
  - ANOREXIA [None]
  - DRUG INEFFECTIVE [None]
  - HEPATITIS [None]
  - JAUNDICE [None]
  - NAUSEA [None]
